FAERS Safety Report 24706513 (Version 1)
Quarter: 2024Q4

REPORT INFORMATION
  Report Type: Spontaneous
  Country: GR (occurrence: GR)
  Receive Date: 20241206
  Receipt Date: 20241206
  Transmission Date: 20250115
  Serious: Yes (Other)
  Sender: GILEAD
  Company Number: GR-GILEAD-2024-0695962

PATIENT
  Sex: Male

DRUGS (1)
  1. GENVOYA [Suspect]
     Active Substance: COBICISTAT\ELVITEGRAVIR\EMTRICITABINE\TENOFOVIR ALAFENAMIDE FUMARATE
     Indication: Antiviral treatment
     Dosage: UNK, QD
     Route: 048
     Dates: start: 2019

REACTIONS (2)
  - Osteoporosis [Unknown]
  - Lipids increased [Unknown]

NARRATIVE: CASE EVENT DATE: 20200101
